FAERS Safety Report 8507225-4 (Version None)
Quarter: 2012Q3

REPORT INFORMATION
  Report Type: 
  Country: None (occurrence: None)
  Receive Date: 20120712
  Receipt Date: 20120703
  Transmission Date: 20120928
  Serious: Yes (Other)
  Sender: FDA-Public Use
  Company Number: US-CELGENEUS-163-21880-12062475

PATIENT
  Sex: Female

DRUGS (23)
  1. ONDANSETRON [Concomitant]
     Dosage: 4 MILLIGRAM
     Route: 048
  2. VITAMIN D2 [Concomitant]
     Dosage: 50000 UNIT
     Route: 048
  3. REVLIMID [Suspect]
     Dosage: 25 MILLIGRAM
     Route: 048
     Dates: end: 20110601
  4. VELCADE [Concomitant]
     Route: 065
     Dates: start: 20101201
  5. KLOR-CON [Concomitant]
     Dosage: 20 MILLIEQUIVALENTS
     Route: 048
  6. UNITHROID [Concomitant]
     Dosage: 50 MICROGRAM
     Route: 048
  7. VITAMIN B-12 [Concomitant]
     Dosage: 1000 MICROGRAM
     Route: 048
  8. REVLIMID [Suspect]
     Dosage: 15 MILLIGRAM
     Route: 048
     Dates: start: 20120501
  9. METFORMIN HCL [Concomitant]
     Dosage: 500 MILLIGRAM
     Route: 048
  10. AUGMENTIN '125' [Concomitant]
     Route: 065
     Dates: start: 20110601
  11. CALCIUM CARBONATE [Concomitant]
     Dosage: 400 MILLIGRAM
     Route: 048
  12. MAG-G [Concomitant]
     Dosage: 27 MILLIGRAM
     Route: 048
  13. MICARDIS [Concomitant]
     Dosage: 1/2 TAB
     Route: 048
  14. NAPROXEN SODIUM [Concomitant]
     Dosage: 375 MILLIGRAM
     Route: 048
  15. DEXAMETHASONE SODIUM POSPHATE [Concomitant]
     Indication: MULTIPLE MYELOMA
     Route: 065
     Dates: start: 20080901, end: 20100101
  16. VELCADE [Concomitant]
     Indication: MULTIPLE MYELOMA
     Route: 065
     Dates: start: 20080901, end: 20090205
  17. ASPIRIN [Concomitant]
     Dosage: 81 MILLIGRAM
     Route: 048
  18. REVLIMID [Suspect]
     Indication: MULTIPLE MYELOMA
     Dosage: 25 MILLIGRAM
     Route: 048
     Dates: start: 20080901
  19. MULTI-DAY VITAMINS [Concomitant]
     Dosage: 1
     Route: 048
  20. MAGNESIUM SULFATE [Concomitant]
     Dosage: 500 MILLIGRAM
     Route: 048
  21. REVLIMID [Suspect]
     Dosage: 25 MILLIGRAM
     Route: 048
     Dates: start: 20101201
  22. LORAZEPAM [Concomitant]
     Dosage: 1 MILLIGRAM
     Route: 048
  23. PROBIOTICS [Concomitant]
     Dosage: 1 CAPSULE
     Route: 048

REACTIONS (4)
  - ANAEMIA [None]
  - THROMBOCYTOPENIA [None]
  - COMPRESSION FRACTURE [None]
  - ARTHRALGIA [None]
